FAERS Safety Report 10607573 (Version 1)
Quarter: 2014Q4

REPORT INFORMATION
  Report Type: Spontaneous
  Country: US (occurrence: None)
  Receive Date: 20141124
  Receipt Date: 20141124
  Transmission Date: 20150529
  Serious: Yes (Hospitalization)
  Sender: FDA-Public Use
  Company Number: None

PATIENT
  Age: 87 Year
  Sex: Male
  Weight: 78.2 kg

DRUGS (16)
  1. LUPRON [Concomitant]
     Active Substance: LEUPROLIDE ACETATE
  2. DIGOXIN. [Concomitant]
     Active Substance: DIGOXIN
  3. VITAMIN D [Concomitant]
     Active Substance: CHOLECALCIFEROL
  4. COUMADIN [Suspect]
     Active Substance: WARFARIN SODIUM
     Indication: ATRIAL FIBRILLATION
     Dosage: 5MG  MTWTHS  PO?CHRONIC
     Route: 048
  5. ARANESP [Concomitant]
     Active Substance: DARBEPOETIN ALFA
  6. BUMEX [Concomitant]
     Active Substance: BUMETANIDE
  7. LUTEIN [Concomitant]
     Active Substance: LUTEIN
  8. ASA [Suspect]
     Active Substance: ASPIRIN
     Indication: CORONARY ARTERY BYPASS
     Dosage: 81MG  DAILY  PO?CHRONIC
     Route: 048
  9. BETOPTIC [Concomitant]
     Active Substance: BETAXOLOL HYDROCHLORIDE
  10. IRON [Concomitant]
     Active Substance: IRON
  11. SYNTHROID [Concomitant]
     Active Substance: LEVOTHYROXINE SODIUM
  12. APAP [Concomitant]
     Active Substance: ACETAMINOPHEN
  13. ARICEPT [Concomitant]
     Active Substance: DONEPEZIL HYDROCHLORIDE
  14. ESCITALOPRAM [Concomitant]
     Active Substance: ESCITALOPRAM OXALATE
  15. SEPTRA [Concomitant]
     Active Substance: SULFAMETHOXAZOLE\TRIMETHOPRIM
  16. TRUSOPT [Concomitant]
     Active Substance: DORZOLAMIDE HYDROCHLORIDE

REACTIONS (3)
  - Haemorrhagic anaemia [None]
  - Gastrointestinal haemorrhage [None]
  - Iron deficiency anaemia [None]

NARRATIVE: CASE EVENT DATE: 20140506
